FAERS Safety Report 7414502-7 (Version None)
Quarter: 2011Q2

REPORT INFORMATION
  Report Type: 
  Country: None (occurrence: None)
  Receive Date: 20110414
  Receipt Date: 20110406
  Transmission Date: 20111010
  Serious: Yes (Hospitalization, Other)
  Sender: FDA-Public Use
  Company Number: US-MYLANLABS-2011S1007552

PATIENT
  Age: 81 Year
  Sex: Female

DRUGS (3)
  1. COZAAR [Suspect]
  2. ATENOLOL [Suspect]
     Route: 048
  3. CARDIZEM [Suspect]

REACTIONS (4)
  - HIP SURGERY [None]
  - HIP FRACTURE [None]
  - FALL [None]
  - WEIGHT INCREASED [None]
